FAERS Safety Report 13006406 (Version 1)
Quarter: 2016Q4

REPORT INFORMATION
  Report Type: Spontaneous
  Country: CA (occurrence: CA)
  Receive Date: 20161207
  Receipt Date: 20161207
  Transmission Date: 20170207
  Serious: Yes (Other)
  Sender: FDA-Public Use
  Company Number: CA-JNJFOC-20161203351

PATIENT
  Age: 69 Year
  Sex: Male

DRUGS (2)
  1. HEPARIN LMW [Suspect]
     Active Substance: UNSPECIFIED INGREDIENT
     Indication: SPLENIC VEIN THROMBOSIS
     Route: 065
  2. IMBRUVICA [Suspect]
     Active Substance: IBRUTINIB
     Indication: CHRONIC LYMPHOCYTIC LEUKAEMIA
     Route: 048

REACTIONS (5)
  - Ear haemorrhage [Unknown]
  - Contusion [Unknown]
  - Splenic vein thrombosis [Recovered/Resolved]
  - Hypoacusis [Recovering/Resolving]
  - Nail bed bleeding [Unknown]
